FAERS Safety Report 6983788-5 (Version None)
Quarter: 2010Q3

REPORT INFORMATION
  Report Type: 
  Country: None (occurrence: None)
  Receive Date: 20100914
  Receipt Date: 20081211
  Transmission Date: 20110219
  Serious: No
  Sender: FDA-Public Use
  Company Number: US-WYE-H07232708

PATIENT
  Age: 88 Year
  Sex: Female
  Weight: 47.67 kg

DRUGS (4)
  1. ADVIL LIQUI-GELS [Suspect]
     Indication: SCIATICA
     Route: 048
     Dates: start: 20081101
  2. ADVIL LIQUI-GELS [Suspect]
     Indication: PAIN
  3. ONE-A-DAY [Concomitant]
  4. CALCIUM [Concomitant]

REACTIONS (2)
  - EPISTAXIS [None]
  - HAEMORRHAGE SUBCUTANEOUS [None]
